FAERS Safety Report 6762390-4 (Version None)
Quarter: 2010Q2

REPORT INFORMATION
  Report Type: 
  Country: None (occurrence: None)
  Receive Date: 20100609
  Receipt Date: 20100527
  Transmission Date: 20101027
  Serious: Yes (Hospitalization, Other)
  Sender: FDA-Public Use
  Company Number: US-ELI_LILLY_AND_COMPANY-US201005007629

PATIENT
  Sex: Male

DRUGS (13)
  1. BYETTA [Suspect]
     Indication: TYPE 2 DIABETES MELLITUS
     Dosage: 5 UG, 2/D
     Route: 058
     Dates: start: 20050101
  2. METFORMIN HCL [Concomitant]
     Indication: DIABETES MELLITUS
     Dosage: 500 MG, 3/D
  3. LIPITOR [Concomitant]
     Indication: BLOOD CHOLESTEROL
     Dosage: 10 MG, DAILY (1/D)
  4. PANTOPRAZOLE [Concomitant]
     Dosage: 40 MG, DAILY (1/D)
  5. ASPIRIN [Concomitant]
     Dosage: 81 MG, UNK
  6. FOLTX [Concomitant]
     Dosage: UNK, DAILY (1/D)
  7. VITAMIN D [Concomitant]
     Dosage: 1000 IU, DAILY (1/D)
  8. AVODART [Concomitant]
     Dosage: 0.5 MG, DAILY (1/D)
  9. VERAMYST [Concomitant]
     Dosage: UNK, AS NEEDED
  10. FLONASE [Concomitant]
     Dosage: UNK, AS NEEDED
  11. CHROMIUM [Concomitant]
     Dosage: 500 MG, DAILY (1/D)
  12. MAGNESIUM [Concomitant]
     Dosage: 250 MG, DAILY (1/D)
  13. MIRALAX [Concomitant]

REACTIONS (6)
  - ABDOMINAL DISTENSION [None]
  - ABDOMINAL PAIN UPPER [None]
  - BACK DISORDER [None]
  - CARDIAC OPERATION [None]
  - DYSPEPSIA [None]
  - LUNG DISORDER [None]
